FAERS Safety Report 19462937 (Version 1)
Quarter: 2021Q2

REPORT INFORMATION
  Report Type: Spontaneous
  Country: JP (occurrence: JP)
  Receive Date: 20210625
  Receipt Date: 20210625
  Transmission Date: 20210717
  Serious: Yes (Death, Life-Threatening, Hospitalization, Other)
  Sender: FDA-Public Use
  Company Number: JP-ASTRAZENECA-2019SF69309

PATIENT
  Age: 74 Year
  Sex: Female

DRUGS (5)
  1. MAGNESIUM OXIDE. [Concomitant]
     Active Substance: MAGNESIUM OXIDE
  2. BENZALIN [Concomitant]
  3. RISPERDAL [Concomitant]
     Active Substance: RISPERIDONE
     Route: 048
  4. REFLEX [Concomitant]
     Active Substance: MIRTAZAPINE
  5. SEROQUEL [Suspect]
     Active Substance: QUETIAPINE FUMARATE
     Indication: MENTAL DISORDER
     Route: 048

REACTIONS (6)
  - Cachexia [Fatal]
  - Loss of consciousness [Fatal]
  - Hypoglycaemia [Fatal]
  - Loose tooth [Fatal]
  - Dysphagia [Fatal]
  - Pneumonia [Fatal]

NARRATIVE: CASE EVENT DATE: 2019
